FAERS Safety Report 5428263-4 (Version None)
Quarter: 2007Q3

REPORT INFORMATION
  Report Type: 
  Country: None (occurrence: None)
  Receive Date: 20070828
  Receipt Date: 20070816
  Transmission Date: 20080115
  Serious: Yes (Other)
  Sender: FDA-Public Use
  Company Number: US-PFIZER INC-2007069769

PATIENT
  Sex: Female
  Weight: 60.9 kg

DRUGS (3)
  1. CHANTIX [Suspect]
     Indication: SMOKING CESSATION THERAPY
  2. MIRALAX [Concomitant]
  3. LORAZEPAM [Concomitant]

REACTIONS (2)
  - PAIN IN EXTREMITY [None]
  - PARALYSIS [None]
